FAERS Safety Report 19309451 (Version 1)
Quarter: 2021Q2

REPORT INFORMATION
  Report Type: Spontaneous
  Country: US (occurrence: US)
  Receive Date: 20210526
  Receipt Date: 20210526
  Transmission Date: 20210717
  Serious: Yes (Disabling)
  Sender: FDA-Public Use
  Company Number: None

PATIENT
  Age: 51 Year
  Sex: Female
  Weight: 83.6 kg

DRUGS (10)
  1. EXEMESTANE 25MG QD [Concomitant]
  2. AFINITOR [Suspect]
     Active Substance: EVEROLIMUS
     Indication: BREAST CANCER
     Route: 048
     Dates: start: 20210101, end: 20210213
  3. OMEPRAZOLE 40MG QD [Concomitant]
  4. SERTRALINE 50MG QD [Concomitant]
  5. CALCIUM + VIT D [Concomitant]
     Active Substance: CALCIUM\VITAMIN D
  6. POTASSIUM 20 MEQ QD [Concomitant]
  7. MIRTAZAPINE 15MG [Concomitant]
     Active Substance: MIRTAZAPINE
  8. ZOFRAN 8MG Q8H [Concomitant]
  9. MAG OX 500MG QD [Concomitant]
  10. LORAZEPAM 1MG Q8H PRN [Concomitant]

REACTIONS (4)
  - Interstitial lung disease [None]
  - Atypical pneumonia [None]
  - Bronchiectasis [None]
  - Pulmonary fibrosis [None]

NARRATIVE: CASE EVENT DATE: 20210211
